FAERS Safety Report 14236780 (Version 7)
Quarter: 2019Q1

REPORT INFORMATION
  Report Type: Report from Study
  Country: US (occurrence: US)
  Receive Date: 20171129
  Receipt Date: 20190222
  Transmission Date: 20190417
  Serious: Yes (Hospitalization, Other)
  Sender: FDA-Public Use
  Company Number: US-ACTELION-A-NJ2017-153134

PATIENT
  Age: 48 Year
  Sex: Male

DRUGS (14)
  1. ENALAPRIL [Concomitant]
     Active Substance: ENALAPRIL
  2. UPTRAVI [Suspect]
     Active Substance: SELEXIPAG
     Indication: PULMONARY ARTERIAL HYPERTENSION
     Dosage: 800 MCG, BID
     Route: 048
  3. INDOMETHACIN. [Concomitant]
     Active Substance: INDOMETHACIN
  4. FUROSEMIDE. [Concomitant]
     Active Substance: FUROSEMIDE
  5. BISOPROLOL [Concomitant]
     Active Substance: BISOPROLOL
  6. UPTRAVI [Suspect]
     Active Substance: SELEXIPAG
     Dosage: 1400 MCG, BID
     Route: 048
     Dates: start: 20170316
  7. UPTRAVI [Suspect]
     Active Substance: SELEXIPAG
     Dosage: 1600 MCG, BID
     Route: 048
     Dates: start: 20170127
  8. POTASSIUM [Concomitant]
     Active Substance: POTASSIUM
  9. ASPIRIN. [Concomitant]
     Active Substance: ASPIRIN
  10. UPTRAVI [Suspect]
     Active Substance: SELEXIPAG
     Dosage: 200 MCG, BID
     Route: 048
     Dates: start: 20170127
  11. OPSUMIT [Suspect]
     Active Substance: MACITENTAN
     Indication: PULMONARY ARTERIAL HYPERTENSION
     Dosage: 10 MG, QD
     Route: 048
     Dates: start: 20170127
  12. DIGOXIN. [Concomitant]
     Active Substance: DIGOXIN
  13. SILDENAFIL. [Concomitant]
     Active Substance: SILDENAFIL
     Dosage: 10 MG, TID
     Dates: start: 20180206
  14. CARVEDILOL. [Concomitant]
     Active Substance: CARVEDILOL

REACTIONS (8)
  - Fatigue [Unknown]
  - Hospitalisation [Unknown]
  - Device inappropriate shock delivery [Recovered/Resolved]
  - Diarrhoea [Unknown]
  - Blood potassium decreased [Unknown]
  - Pain in jaw [Unknown]
  - Blood electrolytes decreased [Unknown]
  - Localised infection [Unknown]

NARRATIVE: CASE EVENT DATE: 20171029
